FAERS Safety Report 6814218-1 (Version None)
Quarter: 2010Q3

REPORT INFORMATION
  Report Type: 
  Country: None (occurrence: None)
  Receive Date: 20100702
  Receipt Date: 20100621
  Transmission Date: 20110219
  Serious: Yes (Hospitalization)
  Sender: FDA-Public Use
  Company Number: JP-NOVOPROD-310624

PATIENT
  Age: 76 Year
  Sex: Male
  Weight: 57 kg

DRUGS (10)
  1. NOVORAPID 30 MIX CHU FLEXPEN [Suspect]
     Indication: TYPE 2 DIABETES MELLITUS
     Dosage: 16 IU, QD
     Route: 058
     Dates: start: 20080601, end: 20090728
  2. NOVORAPID CHU FLEXPEN [Suspect]
     Indication: TYPE 2 DIABETES MELLITUS
     Dosage: 54 U, QD
     Route: 058
     Dates: start: 20080601, end: 20090728
  3. LIVALO [Concomitant]
     Dosage: 2 MG, QD
     Route: 048
  4. PLETAL [Concomitant]
     Dosage: 100 MG, QD
     Route: 048
  5. SERMION                            /00396401/ [Concomitant]
     Dosage: 10 MG, QD
     Route: 048
  6. BUFFERIN [Concomitant]
     Dosage: 162 MG, QD
     Route: 048
  7. ISALON [Concomitant]
     Dosage: 0.8 G, QD
     Route: 048
  8. ARICEPT [Concomitant]
     Dosage: 5 MG, QD
     Route: 048
  9. DIOVAN [Concomitant]
     Dosage: 80 MG, QD
     Route: 048
  10. CHLORMADINONE ACETATE TAB [Concomitant]
     Dosage: 100 MG, QD
     Route: 048

REACTIONS (3)
  - ANTI-INSULIN ANTIBODY POSITIVE [None]
  - ANTI-INSULIN RECEPTOR ANTIBODY POSITIVE [None]
  - HYPOGLYCAEMIA [None]
